FAERS Safety Report 21583996 (Version 6)
Quarter: 2023Q1

REPORT INFORMATION
  Report Type: Report from Study
  Country: IN (occurrence: IN)
  Receive Date: 20221111
  Receipt Date: 20230329
  Transmission Date: 20230418
  Serious: Yes (Hospitalization)
  Sender: FDA-Public Use
  Company Number: IN-002147023-NVSC2022IN251694

PATIENT
  Age: 39 Year
  Sex: Male
  Weight: 69.9 kg

DRUGS (7)
  1. SECUKINUMAB [Suspect]
     Active Substance: SECUKINUMAB
     Indication: Ankylosing spondylitis
     Dosage: 150 MG, Q4W
     Route: 058
     Dates: start: 20220721
  2. NAPROSYN [Concomitant]
     Active Substance: NAPROXEN
     Indication: Prophylaxis
     Dosage: 500 MG, ONCE
     Route: 048
     Dates: start: 20210223
  3. SULFASALAZINE [Concomitant]
     Active Substance: SULFASALAZINE
     Indication: Prophylaxis
     Dosage: 1000 MG, QD
     Route: 048
     Dates: start: 20210223
  4. PANTOPRAZOLE [Concomitant]
     Active Substance: PANTOPRAZOLE
     Indication: Gastritis prophylaxis
     Dosage: 40 MG, ONCE
     Route: 048
     Dates: start: 20220525
  5. PULMOCLEAR [Concomitant]
     Indication: Prophylaxis
     Dosage: 1 MG, BID
     Route: 048
     Dates: start: 20221109, end: 20221114
  6. LEVOCETIRIZINE DIHYDROCHLORIDE [Concomitant]
     Active Substance: LEVOCETIRIZINE DIHYDROCHLORIDE
     Indication: Prophylaxis
     Dosage: 5 MG, QD
     Route: 048
     Dates: start: 20221109, end: 20221114
  7. AMOXICILLIN\CLAVULANATE POTASSIUM [Concomitant]
     Active Substance: AMOXICILLIN\CLAVULANATE POTASSIUM
     Indication: Prophylaxis
     Dosage: 625 MG, BID
     Route: 048
     Dates: start: 20221109, end: 20221114

REACTIONS (1)
  - Lower respiratory tract infection [Recovered/Resolved]

NARRATIVE: CASE EVENT DATE: 20221106
